FAERS Safety Report 9050602 (Version 2)
Quarter: 2013Q1

REPORT INFORMATION
  Report Type: Spontaneous
  Country: DE (occurrence: DE)
  Receive Date: 20130205
  Receipt Date: 20130213
  Transmission Date: 20140127
  Serious: Yes (Life-Threatening, Hospitalization)
  Sender: FDA-Public Use
  Company Number: DE-BAYER-2012-128545

PATIENT
  Age: 72 Year
  Sex: Male
  Weight: 78 kg

DRUGS (3)
  1. XARELTO [Suspect]
     Indication: EMBOLISM VENOUS
     Dosage: 15 MG, QD
     Dates: start: 20120911, end: 20121025
  2. ACETYLSALICYLIC ACID({=100 MG) [Suspect]
     Dosage: UNK
  3. CLEXANE [Concomitant]
     Dosage: 0.6 MG
     Dates: end: 20120911

REACTIONS (6)
  - Cerebrovascular accident [Unknown]
  - Aphasia [Unknown]
  - Monoparesis [Unknown]
  - Enuresis [Unknown]
  - Vomiting [Unknown]
  - VIIth nerve paralysis [Unknown]
